FAERS Safety Report 9331052 (Version 2)
Quarter: 2013Q3

REPORT INFORMATION
  Report Type: Spontaneous
  Country: JP (occurrence: JP)
  Receive Date: 20130605
  Receipt Date: 20130718
  Transmission Date: 20140515
  Serious: Yes (Hospitalization)
  Sender: FDA-Public Use
  Company Number: JP-009507513-1306JPN000379

PATIENT
  Age: 66 Year
  Sex: Female
  Weight: 53 kg

DRUGS (11)
  1. PEGINTRON [Suspect]
     Indication: CHRONIC HEPATITIS C
     Dosage: 1.5 UG/KG/WEEK
     Route: 058
     Dates: start: 20130305, end: 20130507
  2. PEGINTRON [Suspect]
     Dosage: 1.5 UG/KG/WEEK
     Route: 058
     Dates: start: 20130604
  3. REBETOL [Suspect]
     Indication: CHRONIC HEPATITIS C
     Dosage: 600 MG, QD
     Route: 048
     Dates: start: 20130305, end: 20130408
  4. REBETOL [Suspect]
     Dosage: 200 MG, QD
     Route: 048
     Dates: start: 20130409, end: 20130506
  5. REBETOL [Suspect]
     Dosage: 200 MG, QD
     Route: 048
     Dates: start: 20130531, end: 20130617
  6. REBETOL [Suspect]
     Dosage: 400 MG, QD
     Route: 048
     Dates: start: 20130618
  7. TELAVIC [Suspect]
     Indication: CHRONIC HEPATITIS C
     Dosage: 2250 MG, QD
     Route: 048
     Dates: start: 20130305, end: 20130306
  8. TELAVIC [Suspect]
     Dosage: 1500 MG, QD
     Route: 048
     Dates: start: 20130307, end: 20130513
  9. ZYLORIC [Concomitant]
     Dosage: 100 MG, QD
     Route: 048
     Dates: start: 20130307, end: 20130513
  10. MYSLEE [Concomitant]
     Indication: INSOMNIA
     Dosage: 5 MG/DAY, AS NEEDED
     Route: 048
     Dates: start: 20130313
  11. BIOFERMIN R [Concomitant]
     Indication: DIARRHOEA
     Dosage: 3 G, QD
     Route: 048
     Dates: start: 20130402, end: 20130520

REACTIONS (2)
  - Decreased appetite [Recovered/Resolved]
  - Haemoglobin decreased [Recovered/Resolved]
